FAERS Safety Report 23146652 (Version 2)
Quarter: 2024Q3

REPORT INFORMATION
  Report Type: Spontaneous
  Country: JP (occurrence: JP)
  Receive Date: 20231105
  Receipt Date: 20240705
  Transmission Date: 20241016
  Serious: Yes (Other)
  Sender: MERCK
  Company Number: JP-MSD-M2023-45980

PATIENT
  Age: 8 Decade
  Sex: Female

DRUGS (5)
  1. KEYTRUDA [Suspect]
     Active Substance: PEMBROLIZUMAB
     Indication: Triple negative breast cancer
     Dosage: 200 MILLIGRAM, Q3W
     Route: 041
     Dates: start: 202309
  2. PACLITAXEL [Suspect]
     Active Substance: PACLITAXEL
     Dosage: 80 MILLIGRAM/SQ. METER, QW
     Route: 041
     Dates: start: 202309, end: 2023
  3. PACLITAXEL [Suspect]
     Active Substance: PACLITAXEL
     Dosage: UNK
     Route: 041
     Dates: start: 2023
  4. CARBOPLATIN [Suspect]
     Active Substance: CARBOPLATIN
     Dosage: UNK
     Route: 041
     Dates: start: 202309, end: 2023
  5. CARBOPLATIN [Suspect]
     Active Substance: CARBOPLATIN
     Dosage: UNK
     Route: 041
     Dates: start: 2023

REACTIONS (2)
  - Neutropenia [Unknown]
  - Adrenal disorder [Unknown]

NARRATIVE: CASE EVENT DATE: 20230101
